FAERS Safety Report 21560122 (Version 1)
Quarter: 2022Q4

REPORT INFORMATION
  Report Type: Spontaneous
  Country: DE (occurrence: DE)
  Receive Date: 20221107
  Receipt Date: 20221107
  Transmission Date: 20230113
  Serious: Yes (Hospitalization, Other)
  Sender: FDA-Public Use
  Company Number: DE-ADRED-05750-01

PATIENT
  Age: 81 Year
  Sex: Female
  Weight: 90 kg

DRUGS (8)
  1. AMIODARONE [Suspect]
     Active Substance: AMIODARONE
     Indication: Product used for unknown indication
     Dosage: 200 MG, 0.5-0-0-0, TABLET
     Route: 048
  2. RIVAROXABAN [Concomitant]
     Active Substance: RIVAROXABAN
     Dosage: 20 MG, 1-0-0-0, TABLET
     Route: 048
  3. AMLODIPINE\OLMESARTAN [Concomitant]
     Active Substance: AMLODIPINE\OLMESARTAN
     Dosage: 10/31.97 MG, 1-0-0-0, TABLET
     Route: 048
  4. METOPROLOL [Concomitant]
     Active Substance: METOPROLOL
     Dosage: 95 MG, 1-0-0.5-0, PROLONGED-RELEASE TABLETS
     Route: 048
  5. TRIMIPRAMINE [Concomitant]
     Active Substance: TRIMIPRAMINE
     Dosage: 10 MG, 0-0-1-0, DROPS
     Route: 048
  6. LEVOTHYROXINE SODIUM;POTASSIUM IODIDE [Concomitant]
     Dosage: 0.196/0.05 MG, 1-0-0-0, TABLET
     Route: 048
  7. PAROXETINE HYDROCHLORIDE [Concomitant]
     Active Substance: PAROXETINE HYDROCHLORIDE
     Dosage: 20 MG, 0.5-0-0-0, TABLET
     Route: 048
  8. SPIRONOLACTONE [Concomitant]
     Active Substance: SPIRONOLACTONE
     Dosage: 50 MG, 1-0-0-0, TABLET
     Route: 048

REACTIONS (3)
  - Polyneuropathy [Unknown]
  - Paraesthesia [Unknown]
  - Pain [Unknown]
